FAERS Safety Report 8920250 (Version 4)
Quarter: 2021Q4

REPORT INFORMATION
  Report Type: Report from Study
  Country: US (occurrence: None)
  Receive Date: 20121122
  Receipt Date: 20211230
  Transmission Date: 20220303
  Serious: Yes (Hospitalization)
  Sender: FDA-Public Use
  Company Number: US-ROCHE-1154060

PATIENT
  Age: 54 Year
  Sex: Female
  Weight: 89.8 kg

DRUGS (10)
  1. PERTUZUMAB [Suspect]
     Active Substance: PERTUZUMAB
     Indication: Breast cancer
     Dosage: DATE OF LAST DOSE PRIOR TO SAE 17/OCT/2012
     Route: 042
     Dates: start: 20120926
  2. TRASTUZUMAB [Suspect]
     Active Substance: TRASTUZUMAB
     Indication: Breast cancer
     Dosage: LOADING DOSE,
     Route: 042
     Dates: start: 20120926
  3. TRASTUZUMAB [Suspect]
     Active Substance: TRASTUZUMAB
     Dosage: MAINTENANCE DOSE,DATE OF LAST DOSE PRIOR TO SAE 17/OCT/2012
     Route: 042
  4. DOCETAXEL [Suspect]
     Active Substance: DOCETAXEL
     Indication: Breast cancer
     Dosage: DATE OF LAST DOSE PRIOR TO SAE 17/OCT/2012
     Route: 042
     Dates: start: 20120926
  5. ASACOL [Concomitant]
     Active Substance: MESALAMINE
     Dates: start: 20030506
  6. ZOFRAN [Concomitant]
     Active Substance: ONDANSETRON HYDROCHLORIDE
     Dates: start: 20120927
  7. NEUPOGEN [Concomitant]
     Active Substance: FILGRASTIM
     Dates: start: 20121019, end: 20121023
  8. K-TAB [Concomitant]
     Active Substance: POTASSIUM CHLORIDE
     Dates: start: 20121016
  9. LOMOTIL [Concomitant]
     Active Substance: ATROPINE SULFATE\DIPHENOXYLATE HYDROCHLORIDE
     Dates: start: 20121024, end: 20121026
  10. LOMOTIL [Concomitant]
     Active Substance: ATROPINE SULFATE\DIPHENOXYLATE HYDROCHLORIDE
     Dates: start: 20121001

REACTIONS (1)
  - Acute kidney injury [Recovered/Resolved]

NARRATIVE: CASE EVENT DATE: 20121024
